FAERS Safety Report 7073398-6 (Version None)
Quarter: 2010Q4

REPORT INFORMATION
  Report Type: 
  Country: None (occurrence: None)
  Receive Date: 20101029
  Receipt Date: 20100610
  Transmission Date: 20110411
  Serious: No
  Sender: FDA-Public Use
  Company Number: A0864297A

PATIENT
  Age: 75 Year
  Sex: Female

DRUGS (9)
  1. ADVAIR DISKUS 100/50 [Suspect]
     Dosage: 1PUFF PER DAY
     Route: 055
  2. SYNTHROID [Concomitant]
  3. FOLIC ACID [Concomitant]
  4. AMIDRONE [Concomitant]
  5. PROCARDIA [Concomitant]
  6. DIGOXIN [Concomitant]
  7. COUMADIN [Concomitant]
  8. FOSAMAX [Concomitant]
  9. ALBUTEROL [Concomitant]

REACTIONS (1)
  - CANDIDIASIS [None]
